FAERS Safety Report 8144329-2 (Version None)
Quarter: 2012Q1

REPORT INFORMATION
  Report Type: 
  Country: None (occurrence: None)
  Receive Date: 20120217
  Receipt Date: 20120209
  Transmission Date: 20120608
  Serious: Yes (Hospitalization)
  Sender: FDA-Public Use
  Company Number: JP-JNJFOC-20111201543

PATIENT
  Age: 66 Year
  Sex: Female

DRUGS (7)
  1. ZOTEPINE [Suspect]
     Indication: PSYCHOTIC DISORDER
     Route: 065
  2. LITHIUM CARBONATE [Concomitant]
     Indication: PRODUCT USED FOR UNKNOWN INDICATION
     Dosage: 400 TO 800 MG PER V B DAY IN THE LONG TERM
     Route: 065
  3. VALPROATE SODIUM [Concomitant]
     Indication: PRODUCT USED FOR UNKNOWN INDICATION
     Route: 065
  4. RISPERDAL [Suspect]
     Indication: SCHIZOPHRENIA
     Route: 048
  5. RISPERIDONE [Suspect]
     Indication: SCHIZOPHRENIA
     Route: 048
  6. LITHIUM CARBONATE [Concomitant]
     Dosage: 600 TO 1200 MG PER DAY
     Route: 065
  7. LITHIUM CARBONATE [Concomitant]
     Dosage: ON ADMISSION 800 MG WAS PRESCRIBED
     Route: 065

REACTIONS (4)
  - DEPRESSED LEVEL OF CONSCIOUSNESS [None]
  - PNEUMONIA [None]
  - PYREXIA [None]
  - HYPERNATRAEMIA [None]
